FAERS Safety Report 5423705-2 (Version None)
Quarter: 2007Q3

REPORT INFORMATION
  Report Type: 
  Country: None (occurrence: None)
  Receive Date: 20070725
  Receipt Date: 20070420
  Transmission Date: 20080115
  Serious: Yes (Other)
  Sender: FDA-Public Use
  Company Number: US200703002045

PATIENT
  Age: 43 Year
  Sex: Male

DRUGS (6)
  1. STRATTERA [Suspect]
     Indication: ATTENTION DEFICIT/HYPERACTIVITY DISORDER
     Dosage: 40 MG, DAILY (1/D),
     Dates: start: 20040607, end: 20070124
  2. GLUCOPHAGE [Concomitant]
  3. ACTOS [Concomitant]
  4. CARDIAZEM (CARDIAZEM) [Concomitant]
  5. DEPAKOTE [Concomitant]
  6. HYZAAR (HYDOCHLOROTHIAZIDE, LOSARTAN POTASSIUM) [Concomitant]

REACTIONS (1)
  - CEREBROVASCULAR ACCIDENT [None]
